FAERS Safety Report 8199638-8 (Version None)
Quarter: 2012Q1

REPORT INFORMATION
  Report Type: 
  Country: None (occurrence: None)
  Receive Date: 20120311
  Receipt Date: 20120305
  Transmission Date: 20120608
  Serious: Yes (Hospitalization, Other)
  Sender: FDA-Public Use
  Company Number: JP-TEVA-2011004818

PATIENT
  Sex: Male
  Weight: 48.8 kg

DRUGS (9)
  1. DONEPEZIL HCL [Concomitant]
  2. CLOPIDOGREL BISULFATE [Concomitant]
  3. RILMAZAFONE HYDROCHLORIDE [Concomitant]
     Dates: start: 20110128
  4. REBAMIPIDE [Concomitant]
  5. TREANDA [Suspect]
     Indication: SPLENIC MARGINAL ZONE LYMPHOMA
     Route: 042
     Dates: start: 20110124
  6. SULFAMETHOXAZOLE + TRIMETHOPRIM [Concomitant]
  7. RITUXIMAB [Suspect]
     Indication: SPLENIC MARGINAL ZONE LYMPHOMA
     Route: 042
     Dates: start: 20110405
  8. ASPIRIN [Concomitant]
  9. AMPHOTERICIN B [Concomitant]
     Dates: start: 20110202, end: 20110214

REACTIONS (8)
  - PNEUMONIA [None]
  - AGRANULOCYTOSIS [None]
  - LYMPHOCYTE COUNT DECREASED [None]
  - BONE MARROW FAILURE [None]
  - LIVER DISORDER [None]
  - CD4 LYMPHOCYTES DECREASED [None]
  - SPUTUM INCREASED [None]
  - PYREXIA [None]
